FAERS Safety Report 25808372 (Version 1)
Quarter: 2025Q3

REPORT INFORMATION
  Report Type: Spontaneous
  Country: US (occurrence: US)
  Receive Date: 20250916
  Receipt Date: 20250916
  Transmission Date: 20251020
  Serious: Yes (Other)
  Sender: CLINIGEN
  Company Number: US-CLINIGEN-CLI2025000136

PATIENT

DRUGS (1)
  1. FOSCARNET SODIUM [Suspect]
     Active Substance: FOSCARNET SODIUM
     Indication: Gastrointestinal disorder
     Route: 065

REACTIONS (3)
  - Nephropathy toxic [Unknown]
  - Neuropathy peripheral [Unknown]
  - Off label use [Unknown]
